FAERS Safety Report 7756912-4 (Version None)
Quarter: 2011Q3

REPORT INFORMATION
  Report Type: 
  Country: None (occurrence: None)
  Receive Date: 20110916
  Receipt Date: 20110914
  Transmission Date: 20111222
  Serious: Yes (Hospitalization, Other)
  Sender: FDA-Public Use
  Company Number: US-GLAXOSMITHKLINE-A0944620A

PATIENT
  Age: 80 Year
  Sex: Female

DRUGS (2)
  1. SORIATANE [Suspect]
     Indication: MALIGNANT MELANOMA
     Dosage: 25MG PER DAY
     Route: 048
     Dates: start: 20110910
  2. NO CONCURRENT MEDICATION [Concomitant]

REACTIONS (6)
  - THROMBOSIS [None]
  - HYPOAESTHESIA [None]
  - FEELING COLD [None]
  - CHEST PAIN [None]
  - LOSS OF CONSCIOUSNESS [None]
  - OFF LABEL USE [None]
